FAERS Safety Report 9259399 (Version 2)
Quarter: 2013Q2

REPORT INFORMATION
  Report Type: Spontaneous
  Country: JP (occurrence: JP)
  Receive Date: 20130427
  Receipt Date: 20130514
  Transmission Date: 20140414
  Serious: Yes (Life-Threatening, Hospitalization, Other)
  Sender: FDA-Public Use
  Company Number: JP-009507513-1304JPN006344

PATIENT
  Age: 70 Year
  Sex: Male
  Weight: 73 kg

DRUGS (2)
  1. JANUVIA TABLETS 50MG [Suspect]
     Indication: DIABETES MELLITUS
     Dosage: 50 MG, QD
     Route: 048
     Dates: start: 20130322, end: 20130402
  2. NOVORAPID 30 MIX [Concomitant]
     Dosage: 24 UNITS IN THE MORNING AND 12 UNITS IN THE EVENING
     Route: 065

REACTIONS (2)
  - Respiratory failure [Recovering/Resolving]
  - Pancreatitis [Recovering/Resolving]
